FAERS Safety Report 5420300-6 (Version None)
Quarter: 2007Q3

REPORT INFORMATION
  Report Type: 
  Country: None (occurrence: None)
  Receive Date: 20070820
  Receipt Date: 20070814
  Transmission Date: 20080115
  Serious: Yes (Other)
  Sender: FDA-Public Use
  Company Number: AU-MERCK-0706AUS00025

PATIENT
  Age: 90 Year
  Sex: Female
  Weight: 65 kg

DRUGS (4)
  1. FOSAMAX PLUS D [Suspect]
     Indication: OSTEOPOROSIS PROPHYLAXIS
     Route: 048
     Dates: start: 20070524, end: 20070627
  2. CANDESARTAN [Concomitant]
     Indication: HYPERTENSION
     Route: 065
     Dates: start: 20050101
  3. DILTIAZEM HYDROCHLORIDE [Concomitant]
     Indication: HYPERTENSION
     Route: 065
     Dates: start: 20070601, end: 20070710
  4. GLIMEPIRIDE [Concomitant]
     Route: 065
     Dates: start: 20050101

REACTIONS (2)
  - DIZZINESS [None]
  - TOOTHACHE [None]
